FAERS Safety Report 5107551-5 (Version None)
Quarter: 2006Q3

REPORT INFORMATION
  Report Type: 
  Country: None (occurrence: None)
  Receive Date: 20060731
  Receipt Date: 20060408
  Transmission Date: 20061208
  Serious: No
  Sender: FDA-Public Use
  Company Number: 2006PV011712

PATIENT
  Age: 52 Year
  Sex: Female
  Weight: 64.4108 kg

DRUGS (5)
  1. BYETTA [Suspect]
     Indication: DIABETES MELLITUS NON-INSULIN-DEPENDENT
     Dosage: 10 MCG,BID; SC, 5 MCG, BID; SC
     Route: 058
     Dates: start: 20051001, end: 20051101
  2. BYETTA [Suspect]
     Indication: DIABETES MELLITUS NON-INSULIN-DEPENDENT
     Dosage: 10 MCG,BID; SC, 5 MCG, BID; SC
     Route: 058
     Dates: start: 20051101
  3. METFORMIN HCL [Concomitant]
  4. GLUCOTROL [Concomitant]
  5. GLUCOTROL [Concomitant]

REACTIONS (2)
  - BLOOD GLUCOSE INCREASED [None]
  - VOMITING [None]
